FAERS Safety Report 25281245 (Version 1)
Quarter: 2025Q2

REPORT INFORMATION
  Report Type: Spontaneous
  Country: US (occurrence: US)
  Receive Date: 20250508
  Receipt Date: 20250508
  Transmission Date: 20250716
  Serious: Yes (Death, Disabling, Other)
  Sender: CHATTEM
  Company Number: US-OPELLA-2025OHG013665

PATIENT
  Age: 17 Year
  Sex: Male

DRUGS (1)
  1. GOLD BOND ORIGINAL STRENGTH [Suspect]
     Active Substance: MENTHOL
     Indication: Product used for unknown indication

REACTIONS (4)
  - Exposure to chemical pollution [Fatal]
  - Pleural mesothelioma malignant [Fatal]
  - Pleural thickening [Unknown]
  - Pleural fibrosis [Unknown]

NARRATIVE: CASE EVENT DATE: 19560101
